FAERS Safety Report 13462754 (Version 1)
Quarter: 2017Q2

REPORT INFORMATION
  Report Type: Spontaneous
  Country: CN (occurrence: CN)
  Receive Date: 20170420
  Receipt Date: 20170420
  Transmission Date: 20170830
  Serious: Yes (Hospitalization)
  Sender: FDA-Public Use
  Company Number: CN-ASTRAZENECA-2017SE38804

PATIENT
  Age: 82 Year
  Sex: Male

DRUGS (21)
  1. MEROPENEM. [Suspect]
     Active Substance: MEROPENEM
     Indication: LOWER RESPIRATORY TRACT INFECTION
     Route: 042
  2. LEVOFLOXACIN. [Suspect]
     Active Substance: LEVOFLOXACIN
     Indication: LOWER RESPIRATORY TRACT INFECTION
     Route: 065
  3. PIPERACILLIN [Suspect]
     Active Substance: PIPERACILLIN
     Route: 065
  4. AZTREONAM. [Suspect]
     Active Substance: AZTREONAM
     Route: 065
  5. AMOXICILLIN-CLAVULANATE [Suspect]
     Active Substance: AMOXICILLIN\CLAVULANIC ACID
     Route: 065
  6. CEFOTAXIME [Suspect]
     Active Substance: CEFOTAXIME SODIUM
     Route: 065
  7. TETRACYCLINE [Suspect]
     Active Substance: TETRACYCLINE
     Route: 065
  8. CHLORAMPHENICOL [Suspect]
     Active Substance: CHLORAMPHENICOL
     Route: 065
  9. CEFTAZIDIME. [Suspect]
     Active Substance: CEFTAZIDIME
     Route: 065
  10. CEFAZOLIN [Suspect]
     Active Substance: CEFAZOLIN
     Route: 065
  11. AMIKACIN [Suspect]
     Active Substance: AMIKACIN
     Route: 065
  12. MOXIFLOXACIN. [Suspect]
     Active Substance: MOXIFLOXACIN
     Route: 065
  13. CEFEPIME [Suspect]
     Active Substance: CEFEPIME HYDROCHLORIDE
     Route: 065
  14. PIPERACILLIN AND TAZOBACTAM [Suspect]
     Active Substance: PIPERACILLIN SODIUM\TAZOBACTAM SODIUM
     Indication: LOWER RESPIRATORY TRACT INFECTION
     Route: 065
  15. CIPROFLOXACIN. [Suspect]
     Active Substance: CIPROFLOXACIN
     Indication: LOWER RESPIRATORY TRACT INFECTION
     Route: 065
  16. SULFAMETHOXAZOLE-TRIMETHOPRIM [Suspect]
     Active Substance: SULFAMETHOXAZOLE\TRIMETHOPRIM
     Route: 065
  17. IMIPENEM [Suspect]
     Active Substance: IMIPENEM
     Route: 065
  18. GENTAMICIN. [Suspect]
     Active Substance: GENTAMICIN
     Route: 065
  19. AMPICILLIN [Suspect]
     Active Substance: AMPICILLIN
     Route: 065
  20. AMPICILLIN-SULBACTAM [Suspect]
     Active Substance: AMPICILLIN SODIUM\SULBACTAM SODIUM
     Route: 065
  21. POLYMYXIN [Suspect]
     Active Substance: POLYMYXIN
     Route: 065

REACTIONS (1)
  - Multiple-drug resistance [Unknown]
